FAERS Safety Report 5031541-4 (Version None)
Quarter: 2006Q2

REPORT INFORMATION
  Report Type: 
  Country: None (occurrence: None)
  Receive Date: 20060615
  Receipt Date: 20060606
  Transmission Date: 20061013
  Serious: Yes (Death, Hospitalization)
  Sender: FDA-Public Use
  Company Number: 200612311GDS

PATIENT
  Age: 52 Year
  Sex: Male

DRUGS (6)
  1. SORAFENIB [Suspect]
     Indication: METASTATIC RENAL CELL CARCINOMA
     Dosage: 200 MG, BID, ORAL
     Route: 048
     Dates: start: 20060420, end: 20060515
  2. SORAFENIB [Suspect]
     Indication: METASTATIC RENAL CELL CARCINOMA
     Dosage: 200 MG, BID, ORAL
     Route: 048
     Dates: start: 20060519, end: 20060528
  3. DEURSIL [Concomitant]
  4. OMEPRAZOLE [Concomitant]
  5. MEDROL ACETATE [Concomitant]
  6. CONTRAMAL [Concomitant]

REACTIONS (4)
  - ATRIAL FIBRILLATION [None]
  - INTESTINAL OBSTRUCTION [None]
  - MECHANICAL ILEUS [None]
  - POST PROCEDURAL COMPLICATION [None]
